FAERS Safety Report 6133700-6 (Version None)
Quarter: 2009Q1

REPORT INFORMATION
  Report Type: 
  Country: None (occurrence: None)
  Receive Date: 20090326
  Receipt Date: 20090320
  Transmission Date: 20090719
  Serious: Yes (Other)
  Sender: FDA-Public Use
  Company Number: B0566064A

PATIENT
  Age: 81 Year
  Sex: Female

DRUGS (11)
  1. AUGMENTIN '125' [Suspect]
     Indication: LUNG INFECTION
     Dosage: 1G THREE TIMES PER DAY
     Route: 048
     Dates: start: 20090116, end: 20090126
  2. COUMADIN [Suspect]
     Indication: DEEP VEIN THROMBOSIS
     Route: 048
     Dates: start: 20071102, end: 20090216
  3. NEURONTIN [Concomitant]
     Dosage: 800MG THREE TIMES PER DAY
     Route: 065
     Dates: start: 20061231
  4. DEPAKENE [Concomitant]
     Dosage: 500MG SEE DOSAGE TEXT
     Route: 065
     Dates: start: 20070120
  5. DIFFU K [Concomitant]
     Route: 065
     Dates: start: 20060101
  6. SERESTA [Concomitant]
     Dosage: 5MG PER DAY
     Route: 065
     Dates: start: 20070101
  7. ORAMORPH SR [Concomitant]
     Route: 065
     Dates: start: 20090212
  8. DURAGESIC-100 [Concomitant]
     Route: 065
     Dates: start: 20080719
  9. DAFALGAN [Concomitant]
     Route: 065
     Dates: start: 20080401
  10. HALDOL [Concomitant]
     Route: 065
     Dates: start: 20090120
  11. SPASFON [Concomitant]
     Route: 065
     Dates: start: 20090110

REACTIONS (8)
  - ALANINE AMINOTRANSFERASE INCREASED [None]
  - ASPARTATE AMINOTRANSFERASE INCREASED [None]
  - BLOOD ALKALINE PHOSPHATASE INCREASED [None]
  - CHOLESTASIS [None]
  - DRUG INTERACTION [None]
  - GAMMA-GLUTAMYLTRANSFERASE INCREASED [None]
  - HAEMATOMA [None]
  - INTERNATIONAL NORMALISED RATIO INCREASED [None]
